FAERS Safety Report 19030782 (Version 1)
Quarter: 2021Q1

REPORT INFORMATION
  Report Type: Spontaneous
  Country: DE (occurrence: DE)
  Receive Date: 20210319
  Receipt Date: 20210319
  Transmission Date: 20210420
  Serious: Yes (Other)
  Sender: FDA-Public Use
  Company Number: DE-SA-2021SA094484

PATIENT
  Sex: Female

DRUGS (1)
  1. DUPIXENT [Suspect]
     Active Substance: DUPILUMAB
     Indication: DERMATITIS ATOPIC
     Dosage: UNK

REACTIONS (5)
  - Face oedema [Unknown]
  - Dermatitis exfoliative generalised [Unknown]
  - Skin burning sensation [Unknown]
  - Skin exfoliation [Unknown]
  - Pruritus [Unknown]
